FAERS Safety Report 8921043 (Version 3)
Quarter: 2013Q1

REPORT INFORMATION
  Report Type: Spontaneous
  Country: JP (occurrence: JP)
  Receive Date: 20121122
  Receipt Date: 20130103
  Transmission Date: 20140127
  Serious: Yes (Hospitalization)
  Sender: FDA-Public Use
  Company Number: JP-ROCHE-1159137

PATIENT
  Age: 38 Year
  Sex: Female

DRUGS (4)
  1. CEFTRIAXONE [Suspect]
     Indication: PROPHYLAXIS
     Route: 042
  2. CEFDITOREN PIVOXIL [Suspect]
     Indication: PROPHYLAXIS
     Route: 065
  3. FLOMOXEF SODIUM [Suspect]
     Indication: PROPHYLAXIS
     Dosage: 2 DOSES
     Route: 042
  4. CEFTERAM PIVOXIL [Suspect]
     Indication: PROPHYLAXIS
     Route: 048

REACTIONS (1)
  - Acute generalised exanthematous pustulosis [Recovered/Resolved]
